FAERS Safety Report 19745314 (Version 7)
Quarter: 2021Q4

REPORT INFORMATION
  Report Type: Report from Study
  Country: MX (occurrence: MX)
  Receive Date: 20210825
  Receipt Date: 20211206
  Transmission Date: 20220303
  Serious: Yes (Other)
  Sender: FDA-Public Use
  Company Number: MX-BAYER-2021-198845

PATIENT
  Age: 46 Year
  Sex: Female

DRUGS (2)
  1. NEXAVAR [Suspect]
     Active Substance: SORAFENIB
     Indication: Renal cell carcinoma
     Dosage: 400 MG, BID
     Route: 048
     Dates: start: 20210820
  2. NEXAVAR [Suspect]
     Active Substance: SORAFENIB
     Indication: Renal cell carcinoma
     Dosage: 600 MG ( 400 MG IN THE MORNING AND 200 MG AT NIGHT )
     Route: 048
     Dates: start: 20211005

REACTIONS (10)
  - Facial paralysis [Not Recovered/Not Resolved]
  - Diarrhoea [Recovered/Resolved]
  - Pain of skin [Recovered/Resolved]
  - Blister [Recovered/Resolved]
  - Oral disorder [Recovered/Resolved]
  - Rash [Recovered/Resolved]
  - Pain in extremity [Recovered/Resolved]
  - Pruritus [Recovered/Resolved]
  - Pruritus genital [Recovered/Resolved]
  - Blister [Not Recovered/Not Resolved]

NARRATIVE: CASE EVENT DATE: 20210821
